FAERS Safety Report 5775180-6 (Version None)
Quarter: 2008Q2

REPORT INFORMATION
  Report Type: 
  Country: None (occurrence: None)
  Receive Date: 20080617
  Receipt Date: 20080617
  Transmission Date: 20081010
  Serious: Yes (Hospitalization)
  Sender: FDA-Public Use
  Company Number: A0733377A

PATIENT
  Age: 43 Year
  Sex: Female

DRUGS (2)
  1. ALLI [Suspect]
     Indication: WEIGHT LOSS DIET
     Route: 048
     Dates: start: 20070101
  2. IBUROFEN [Concomitant]
     Dosage: 200MG AS REQUIRED

REACTIONS (2)
  - NEPHROLITHIASIS [None]
  - PAIN [None]
